FAERS Safety Report 14756642 (Version 1)
Quarter: 2018Q2

REPORT INFORMATION
  Report Type: Spontaneous
  Country: US (occurrence: US)
  Receive Date: 20180407
  Receipt Date: 20180407
  Transmission Date: 20180711
  Serious: Yes (Life-Threatening, Hospitalization, Disabling, Other)
  Sender: FDA-Public Use
  Company Number: None

PATIENT
  Age: 56 Year
  Sex: Female
  Weight: 72 kg

DRUGS (10)
  1. ALPRAZOLAM. [Concomitant]
     Active Substance: ALPRAZOLAM
  2. FENTYNEL [Concomitant]
  3. SENNA [Concomitant]
     Active Substance: SENNA LEAF\SENNOSIDES\SENNOSIDES A AND B
  4. DILAUDID [Concomitant]
     Active Substance: HYDROMORPHONE HYDROCHLORIDE
  5. MAGNESIUM [Concomitant]
     Active Substance: MAGNESIUM
  6. PAXIL [Concomitant]
     Active Substance: PAROXETINE HYDROCHLORIDE
  7. OMEPRAZOLE. [Concomitant]
     Active Substance: OMEPRAZOLE
  8. MEDICAL CANABIS [Concomitant]
  9. RANITIDINE. [Concomitant]
     Active Substance: RANITIDINE
  10. NP THYROID [Suspect]
     Active Substance: LEVOTHYROXINE\LIOTHYRONINE
     Indication: DRUG THERAPY
     Route: 048
     Dates: start: 20180216, end: 20180401

REACTIONS (19)
  - Hyperaesthesia [None]
  - Mood swings [None]
  - Vomiting [None]
  - Migraine [None]
  - Dizziness [None]
  - Lethargy [None]
  - Pruritus [None]
  - Decreased appetite [None]
  - Chest pain [None]
  - Diarrhoea [None]
  - Palpitations [None]
  - Heart rate increased [None]
  - Dyspnoea [None]
  - Rash [None]
  - Hyperhidrosis [None]
  - Temperature intolerance [None]
  - Tremor [None]
  - Dehydration [None]
  - Nervousness [None]

NARRATIVE: CASE EVENT DATE: 20180216
